FAERS Safety Report 6009105-5 (Version None)
Quarter: 2008Q4

REPORT INFORMATION
  Report Type: 
  Country: None (occurrence: None)
  Receive Date: 20081216
  Receipt Date: 20081204
  Transmission Date: 20090506
  Serious: Yes (Hospitalization)
  Sender: FDA-Public Use
  Company Number: ADE2008-0403

PATIENT
  Age: 53 Year
  Sex: Female

DRUGS (7)
  1. ATENOLOL [Suspect]
     Indication: PALPITATIONS
     Dosage: 50 MG - DAILY
     Dates: end: 20070901
  2. ASPEGIC 325 [Concomitant]
  3. FOSINOPRIL SODIUM [Concomitant]
  4. PRAVASTATIN [Concomitant]
  5. OMEPRAZOLE [Concomitant]
  6. RIVOTRIL DROPS [Concomitant]
  7. INSULIN FAST AND SEMI-SLOW [Concomitant]

REACTIONS (6)
  - BLOOD CREATININE INCREASED [None]
  - BLOOD POTASSIUM INCREASED [None]
  - DISEASE RECURRENCE [None]
  - ERYSIPELAS [None]
  - INFLAMMATION [None]
  - PALPITATIONS [None]
